FAERS Safety Report 7507170-7 (Version None)
Quarter: 2011Q2

REPORT INFORMATION
  Report Type: 
  Country: None (occurrence: None)
  Receive Date: 20110526
  Receipt Date: 20110511
  Transmission Date: 20111010
  Serious: Yes (Other)
  Sender: FDA-Public Use
  Company Number: SG-BAYER-2011-041240

PATIENT
  Age: 62 Year
  Sex: Male

DRUGS (6)
  1. NAPROXEN SODIUM [Suspect]
  2. ACETYLSALICYLIC ACID SRT [Suspect]
  3. CHLORMEZANONE [Suspect]
  4. MEFENAMIC ACID [Suspect]
  5. DICLOFENAC SODIUM [Suspect]
  6. INDOMETHACIN SODIUM [Suspect]

REACTIONS (1)
  - ANGIOEDEMA [None]
